FAERS Safety Report 13572340 (Version 1)
Quarter: 2017Q2

REPORT INFORMATION
  Report Type: Spontaneous
  Country: US (occurrence: US)
  Receive Date: 20170523
  Receipt Date: 20170523
  Transmission Date: 20170830
  Serious: No
  Sender: FDA-Public Use
  Company Number: US-JNJFOC-20170313301

PATIENT
  Age: 76 Year
  Sex: Male

DRUGS (7)
  1. FISH OIL [Concomitant]
     Active Substance: FISH OIL
  2. ALEVE [Concomitant]
     Active Substance: NAPROXEN SODIUM
  3. IMBRUVICA [Suspect]
     Active Substance: IBRUTINIB
     Indication: CHRONIC LYMPHOCYTIC LEUKAEMIA
     Route: 048
     Dates: start: 201603
  4. SIMVASTATIN. [Concomitant]
     Active Substance: SIMVASTATIN
  5. ASPIRIN. [Concomitant]
     Active Substance: ASPIRIN
  6. FOLIC ACID. [Concomitant]
     Active Substance: FOLIC ACID
  7. MULTI VITAMIN [Concomitant]
     Active Substance: VITAMINS

REACTIONS (1)
  - Libido decreased [Not Recovered/Not Resolved]

NARRATIVE: CASE EVENT DATE: 201603
